FAERS Safety Report 14322498 (Version 1)
Quarter: 2017Q4

REPORT INFORMATION
  Report Type: Spontaneous
  Country: GB (occurrence: GB)
  Receive Date: 20171225
  Receipt Date: 20171225
  Transmission Date: 20180321
  Serious: Yes (Other)
  Sender: FDA-Public Use
  Company Number: GB-B.I. PHARMACEUTICALS,INC./RIDGEFIELD-2017-BI-068243

PATIENT

DRUGS (2)
  1. GILOTRIF [Suspect]
     Active Substance: AFATINIB
     Indication: EGFR GENE MUTATION
     Dosage: TWO YEARS
     Route: 065
  2. GILOTRIF [Suspect]
     Active Substance: AFATINIB
     Indication: NON-SMALL CELL LUNG CANCER

REACTIONS (6)
  - Gene mutation [Unknown]
  - Rash [Recovered/Resolved]
  - Pleural effusion [Unknown]
  - Malignant neoplasm progression [Unknown]
  - Paronychia [Recovered/Resolved]
  - Diarrhoea [Recovered/Resolved]
